FAERS Safety Report 25402084 (Version 1)
Quarter: 2025Q2

REPORT INFORMATION
  Report Type: Spontaneous
  Country: CA (occurrence: CA)
  Receive Date: 20250605
  Receipt Date: 20250605
  Transmission Date: 20250717
  Serious: Yes (Life-Threatening, Disabling, Other)
  Sender: MYLAN
  Company Number: CA-MYLANLABS-2025M1047352

PATIENT
  Age: 67 Year
  Sex: Female
  Weight: 67.13 kg

DRUGS (8)
  1. PREGABALIN [Suspect]
     Active Substance: PREGABALIN
     Indication: Pain in extremity
     Dosage: 75 MILLIGRAM, QD (1 EVERY 1 DAYS)
  2. PREGABALIN [Suspect]
     Active Substance: PREGABALIN
     Indication: Back pain
     Dosage: 75 MILLIGRAM, QD (1 EVERY 1 DAYS)
  3. PREGABALIN [Suspect]
     Active Substance: PREGABALIN
     Dosage: 75 MILLIGRAM, QD (1 EVERY 1 DAYS)
     Route: 048
  4. PREGABALIN [Suspect]
     Active Substance: PREGABALIN
     Dosage: 75 MILLIGRAM, QD (1 EVERY 1 DAYS)
     Route: 048
  5. PREGABALIN [Suspect]
     Active Substance: PREGABALIN
     Dosage: 50 MILLIGRAM, QD ((1 EVERY 1 DAYS)
  6. PREGABALIN [Suspect]
     Active Substance: PREGABALIN
     Dosage: 50 MILLIGRAM, QD ((1 EVERY 1 DAYS)
  7. PREGABALIN [Suspect]
     Active Substance: PREGABALIN
     Dosage: 50 MILLIGRAM, QD ((1 EVERY 1 DAYS)
     Route: 048
  8. PREGABALIN [Suspect]
     Active Substance: PREGABALIN
     Dosage: 50 MILLIGRAM, QD ((1 EVERY 1 DAYS)
     Route: 048

REACTIONS (7)
  - Fear [Recovering/Resolving]
  - Anxiety [Recovering/Resolving]
  - Balance disorder [Recovering/Resolving]
  - Disorientation [Recovering/Resolving]
  - Dizziness [Recovering/Resolving]
  - Somnolence [Recovering/Resolving]
  - Product administration error [Recovering/Resolving]
